FAERS Safety Report 10557066 (Version 2)
Quarter: 2015Q2

REPORT INFORMATION
  Report Type: Report from Study
  Country: TR (occurrence: TR)
  Receive Date: 20141031
  Receipt Date: 20150521
  Transmission Date: 20150821
  Serious: Yes (Hospitalization)
  Sender: FDA-Public Use
  Company Number: TR-NOVOPROD-427080

PATIENT
  Sex: Male
  Weight: 2.82 kg

DRUGS (2)
  1. NOVORAPID [Suspect]
     Active Substance: INSULIN ASPART
     Indication: TYPE 2 DIABETES MELLITUS
     Dosage: 15 U, QD
     Route: 064
     Dates: start: 20140129, end: 20140731
  2. NOVORAPID [Suspect]
     Active Substance: INSULIN ASPART
     Dosage: 17 U, QD
     Route: 063

REACTIONS (3)
  - Neonatal gastrointestinal haemorrhage [Recovered/Resolved]
  - Foetal exposure during pregnancy [Recovered/Resolved]
  - Premature baby [Unknown]

NARRATIVE: CASE EVENT DATE: 20140129
